FAERS Safety Report 9496066 (Version 1)
Quarter: 2013Q3

REPORT INFORMATION
  Report Type: Spontaneous
  Country: US (occurrence: US)
  Receive Date: 20130904
  Receipt Date: 20130904
  Transmission Date: 20140515
  Serious: No
  Sender: FDA-Public Use
  Company Number: US-BIOGENIDEC-2013BI082541

PATIENT
  Age: 61 Year
  Sex: Female

DRUGS (6)
  1. AVONEX [Suspect]
     Indication: MULTIPLE SCLEROSIS
     Route: 030
     Dates: start: 20110217
  2. CYMBALTA [Concomitant]
  3. FENTANYL [Concomitant]
  4. IBUPROFEN COMFORT PAC [Concomitant]
  5. METHOTREXATE SODIUM [Concomitant]
  6. XANAX XR [Concomitant]

REACTIONS (2)
  - Hemiparesis [Unknown]
  - Peroneal nerve palsy [Unknown]
